FAERS Safety Report 21799117 (Version 1)
Quarter: 2022Q4

REPORT INFORMATION
  Report Type: Spontaneous
  Country: FR (occurrence: FR)
  Receive Date: 20221230
  Receipt Date: 20221230
  Transmission Date: 20230113
  Serious: Yes (Hospitalization, Other)
  Sender: FDA-Public Use
  Company Number: None

PATIENT
  Age: 71 Year
  Sex: Female
  Weight: 84 kg

DRUGS (16)
  1. PENTOXIFYLLINE [Suspect]
     Active Substance: PENTOXIFYLLINE
     Indication: Atrial fibrillation
     Dosage: UNK UNK,Q3D
     Route: 065
  2. LEVOFLOXACIN [Interacting]
     Active Substance: LEVOFLOXACIN
     Indication: Bronchitis
     Dosage: 500 MG,QD/MORNING
     Route: 065
     Dates: start: 20090523, end: 20090526
  3. PENTOXIFYLLINE [Interacting]
     Active Substance: PENTOXIFYLLINE
     Indication: Atrial fibrillation
     Dosage: 20 MG/1/4 TABLET D1, 1/4 TABLET  D2, 1/2 TABLET D3, PREVISCAN 20 MG, COMPRIM? S?CABLE
     Route: 065
     Dates: end: 20090602
  4. CEFPODOXIME [Interacting]
     Active Substance: CEFPODOXIME
     Indication: Bronchitis
     Dosage: 100 MG,BID/MORNING AND EVENING
     Route: 065
     Dates: start: 20090513, end: 20090523
  5. CEFPODOXIME [Interacting]
     Active Substance: CEFPODOXIME
     Indication: Bronchitis
     Dosage: MATIN ET SOIR, ORELOX 100 MG, COMPRIM? PELLICUL?
     Route: 065
     Dates: start: 20090513, end: 20090523
  6. KARDEGIC [Concomitant]
     Active Substance: ASPIRIN DL-LYSINE
     Indication: Product used for unknown indication
     Dosage: LE MIDI, KARDEGIC 75 MG, POUDRE POUR SOLUTION BUVABLE EN SACHET-DOSE
     Route: 065
  7. ESTAZOLAM [Concomitant]
     Active Substance: ESTAZOLAM
     Indication: Product used for unknown indication
     Dosage: DOSE UNIT: 2 MG, NOCTALON
     Route: 065
  8. LERCANIDIPINE [Concomitant]
     Active Substance: LERCANIDIPINE
     Indication: Hypertension
     Dosage: 1/2 CP LE MATIN, LERCAN 10 MG, COMPRIM? PELLICUL? S?CABLE
     Route: 065
  9. ACETAMINOPHEN\CODEINE PHOSPHATE [Concomitant]
     Active Substance: ACETAMINOPHEN\CODEINE PHOSPHATE
     Indication: Product used for unknown indication
     Route: 065
  10. CRESTOR [Concomitant]
     Active Substance: ROSUVASTATIN CALCIUM
     Indication: Hypercholesterolaemia
     Dosage: UNK UNK,QD, CRESTOR 5 MG, COMPRIM? PELLICUL?
     Route: 065
  11. KERLONE [Concomitant]
     Active Substance: BETAXOLOL HYDROCHLORIDE
     Indication: Hypertension
     Dosage: UNK UNK,QD/1/2 TABLET IN MORNING, KERLONE 20 MG, COMPRIM? PELLICUL? S?CABLE
  12. XANAX [Concomitant]
     Active Substance: ALPRAZOLAM
     Indication: Product used for unknown indication
     Dosage: DOSE UNIT: .25 MG
     Route: 065
  13. ACETAMINOPHEN [Concomitant]
     Active Substance: ACETAMINOPHEN
     Indication: Product used for unknown indication
     Dosage: UNK
     Route: 065
  14. ANAFRANIL [Concomitant]
     Active Substance: CLOMIPRAMINE HYDROCHLORIDE
     Indication: Product used for unknown indication
     Dosage: DOSE UNIT: 25 MG
     Route: 065
  15. AMIODARONE [Concomitant]
     Active Substance: AMIODARONE
     Indication: Atrial fibrillation
     Dosage: UNK UNK,5IW
     Route: 065
     Dates: start: 2006
  16. LANSOPRAZOLE [Concomitant]
     Active Substance: LANSOPRAZOLE
     Indication: Product used for unknown indication
     Dosage: UNK UNK,QD

REACTIONS (4)
  - Ecchymosis [Recovered/Resolved]
  - International normalised ratio increased [Recovered/Resolved]
  - Melaena [Recovered/Resolved]
  - Drug interaction [Recovered/Resolved]

NARRATIVE: CASE EVENT DATE: 20090526
